FAERS Safety Report 22648621 (Version 1)
Quarter: 2023Q2

REPORT INFORMATION
  Report Type: Spontaneous
  Country: CA (occurrence: CA)
  Receive Date: 20230628
  Receipt Date: 20230628
  Transmission Date: 20230722
  Serious: Yes (Hospitalization, Other)
  Sender: FDA-Public Use
  Company Number: CA-002147023-NVSC2023CA144888

PATIENT
  Age: 5 Year
  Sex: Female

DRUGS (5)
  1. METHOTREXATE [Interacting]
     Active Substance: METHOTREXATE
     Indication: B-cell type acute leukaemia
     Dosage: 12 MG/M2, CYCLIC
     Route: 037
  2. METHOTREXATE [Interacting]
     Active Substance: METHOTREXATE
     Dosage: 200 MG/M2, CYCLIC
     Route: 042
  3. ASPIRIN [Interacting]
     Active Substance: ASPIRIN
     Indication: Moyamoya disease
     Dosage: 80 MG, QD
     Route: 065
  4. ASPIRIN [Interacting]
     Active Substance: ASPIRIN
     Indication: Cerebrovascular accident prophylaxis
  5. VINCRISTINE [Concomitant]
     Active Substance: VINCRISTINE
     Indication: B-cell type acute leukaemia
     Dosage: 1.5 MG/M2, UNKNOWN
     Route: 065

REACTIONS (2)
  - Nephropathy toxic [Recovered/Resolved]
  - Drug interaction [Unknown]
